FAERS Safety Report 5141000-6 (Version None)
Quarter: 2006Q4

REPORT INFORMATION
  Report Type: 
  Country: None (occurrence: None)
  Receive Date: 20061026
  Receipt Date: 20061019
  Transmission Date: 20070319
  Serious: Yes (Other)
  Sender: FDA-Public Use
  Company Number: 2006121092

PATIENT
  Sex: Male

DRUGS (5)
  1. NEURONTIN [Suspect]
     Dosage: 600 MG (300 MG, 2 IN 1 D), ORAL
     Route: 048
     Dates: start: 20050501
  2. MICARDIS [Concomitant]
  3. AMARYL [Concomitant]
  4. SECOTEX (TAMSULOSIN HYDROCHLORIDE) [Concomitant]
  5. SOMALGIN (ACETYLSALICYLIC ACID, ALUMINIUM GLYCINATE MAGNESIUM CARBONAT [Concomitant]

REACTIONS (5)
  - BLOOD CHOLESTEROL ABNORMAL [None]
  - BLOOD PRESSURE INCREASED [None]
  - BLOOD TRIGLYCERIDES ABNORMAL [None]
  - DIABETES MELLITUS [None]
  - PROSTATE CANCER [None]
